FAERS Safety Report 17139900 (Version 1)
Quarter: 2019Q4

REPORT INFORMATION
  Report Type: Spontaneous
  Country: JP (occurrence: JP)
  Receive Date: 20191211
  Receipt Date: 20191211
  Transmission Date: 20200122
  Serious: Yes (Other)
  Sender: FDA-Public Use
  Company Number: JP-ELI_LILLY_AND_COMPANY-JP201912000139

PATIENT
  Age: 95 Year
  Sex: Female
  Weight: 37 kg

DRUGS (4)
  1. DONEPEZIL. [Concomitant]
     Active Substance: DONEPEZIL
  2. DOPACOL [Concomitant]
     Active Substance: CARBIDOPA\LEVODOPA
  3. ZONISAMIDE. [Concomitant]
     Active Substance: ZONISAMIDE
  4. FORTEO [Suspect]
     Active Substance: TERIPARATIDE
     Indication: PRODUCT USED FOR UNKNOWN INDICATION
     Route: 058

REACTIONS (1)
  - Osteonecrosis of external auditory canal [Unknown]
